FAERS Safety Report 10792785 (Version 3)
Quarter: 2015Q3

REPORT INFORMATION
  Report Type: Spontaneous
  Country: BR (occurrence: BR)
  Receive Date: 20150213
  Receipt Date: 20150729
  Transmission Date: 20151125
  Serious: Yes (Hospitalization, Other)
  Sender: FDA-Public Use
  Company Number: BR-BAYER-2015-008656

PATIENT
  Age: 55 Year
  Sex: Female
  Weight: 94.79 kg

DRUGS (6)
  1. CIPRO [Suspect]
     Active Substance: CIPROFLOXACIN HYDROCHLORIDE
     Indication: LOCALISED INFECTION
     Dosage: 500 MG, BID
     Route: 048
     Dates: start: 20150116, end: 2015
  2. CIPRO [Suspect]
     Active Substance: CIPROFLOXACIN HYDROCHLORIDE
     Indication: ERYTHEMA
  3. DALACIN C [Concomitant]
     Active Substance: CLINDAMYCIN PHOSPHATE
     Indication: ERYTHEMA
  4. DALACIN C [Concomitant]
     Active Substance: CLINDAMYCIN PHOSPHATE
     Indication: LOCALISED INFECTION
     Dosage: 600 MG, QID
     Route: 048
     Dates: start: 20150116
  5. DALACIN C [Concomitant]
     Active Substance: CLINDAMYCIN PHOSPHATE
     Indication: PERIPHERAL SWELLING
  6. CIPRO [Suspect]
     Active Substance: CIPROFLOXACIN HYDROCHLORIDE
     Indication: PERIPHERAL SWELLING

REACTIONS (6)
  - Localised infection [Recovered/Resolved]
  - Localised infection [Recovered/Resolved]
  - Drug ineffective [None]
  - Suspected counterfeit product [None]
  - Peripheral swelling [Not Recovered/Not Resolved]
  - Erythema [Not Recovered/Not Resolved]

NARRATIVE: CASE EVENT DATE: 201501
